FAERS Safety Report 6131174-2 (Version None)
Quarter: 2009Q1

REPORT INFORMATION
  Report Type: 
  Country: None (occurrence: None)
  Receive Date: 20090325
  Receipt Date: 20090320
  Transmission Date: 20090719
  Serious: Yes (Disabling)
  Sender: FDA-Public Use
  Company Number: DE-WYE-G03282709

PATIENT
  Sex: Male
  Weight: 91 kg

DRUGS (6)
  1. TREVILOR RETARD [Suspect]
     Indication: DEPRESSION
     Route: 048
     Dates: start: 20080701
  2. TRUXAL [Concomitant]
     Route: 048
  3. TILIDINE [Concomitant]
     Route: 048
  4. IBUPROFEN TABLETS [Concomitant]
     Route: 048
  5. ZYPREXA [Concomitant]
     Dosage: 10 MG, FREQUENCY UNKNOWN
     Route: 048
  6. IMESON [Concomitant]

REACTIONS (1)
  - PERICARDIAL EFFUSION [None]
